FAERS Safety Report 4876616-5 (Version None)
Quarter: 2005Q4

REPORT INFORMATION
  Report Type: 
  Country: None (occurrence: None)
  Receive Date: 20051206
  Receipt Date: 20050923
  Transmission Date: 20060501
  Serious: No
  Sender: FDA-Public Use
  Company Number: USA0506100805

PATIENT
  Age: 75 Year
  Sex: Female

DRUGS (22)
  1. CYMBALTA [Suspect]
     Indication: DEPRESSION
     Dosage: 30 MG
  2. ISOSORBIDE MONONITRATE [Concomitant]
  3. NITROSTAT [Concomitant]
  4. ADVAIR DISKUS 250/50 [Concomitant]
  5. SPIRIVA [Concomitant]
  6. PROVIGIL [Concomitant]
  7. WELLBUTRIN [Concomitant]
  8. ZOLOFT [Concomitant]
  9. FOLGARD [Concomitant]
  10. LIPITOR [Concomitant]
  11. ZETIA [Concomitant]
  12. PROTONIX [Concomitant]
  13. ATENOLOL [Concomitant]
  14. DIOVAN [Concomitant]
  15. FUROSEMIDE [Concomitant]
  16. NORVASC [Concomitant]
  17. FOLIC ACID [Concomitant]
  18. PRENATAL [Concomitant]
  19. CALCIUM WITH VITAMIN D [Concomitant]
  20. ECOTRIN (ACETYLSALICYLIC ACID) [Concomitant]
  21. PLAVIX [Concomitant]
  22. PREMAIN VAGINAL CREAM (ESTROGENS CONJUGATED) [Concomitant]

REACTIONS (1)
  - BLOOD PRESSURE INCREASED [None]
